FAERS Safety Report 7276102-1 (Version None)
Quarter: 2011Q1

REPORT INFORMATION
  Report Type: 
  Country: None (occurrence: None)
  Receive Date: 20110204
  Receipt Date: 20110126
  Transmission Date: 20110831
  Serious: Yes (Hospitalization)
  Sender: FDA-Public Use
  Company Number: US-ASTRAZENECA-2011SE04906

PATIENT
  Age: 64 Year
  Sex: Male

DRUGS (2)
  1. NORVASC [Concomitant]
     Dosage: AT NIGHT. (P.M)
  2. TOPROL-XL [Suspect]
     Dosage: EVERY MORNING.(A.M)
     Route: 048

REACTIONS (1)
  - CORONARY ARTERY BYPASS [None]
